FAERS Safety Report 5033590-9 (Version None)
Quarter: 2006Q2

REPORT INFORMATION
  Report Type: 
  Country: None (occurrence: None)
  Receive Date: 20060518
  Receipt Date: 20050713
  Transmission Date: 20061013
  Serious: Yes (Other)
  Sender: FDA-Public Use
  Company Number: 2005054824

PATIENT
  Age: 41 Year
  Sex: Female
  Weight: 65.7716 kg

DRUGS (11)
  1. DEPO-PROVERA [Suspect]
     Indication: CONTRACEPTION
     Dosage: SEE IMAGE
     Route: 030
     Dates: start: 19990222, end: 19990222
  2. DEPO-PROVERA [Suspect]
     Indication: CONTRACEPTION
     Dosage: SEE IMAGE
     Route: 030
     Dates: start: 20040607, end: 20040607
  3. DEMULEN (ETHINYLESTRADIOL, ETYNODIOL DIACETATE) [Concomitant]
  4. ACETAMINOPHEN [Concomitant]
  5. ASPIRIN [Concomitant]
  6. ZYBAN (BUPROPIN HYDROCHLORIDE) [Concomitant]
  7. CONTAC ^GLAXO SMITHKLINE^ (PSEUDOEPHEDRINE HYDROCHLORIDE) [Concomitant]
  8. ZICAM, UNSPECIFIED (COUGH AND COLD PREPARATIONS) [Concomitant]
  9. TUSSIN ^DUMAS-WILSON^ (DEXTROMETHORPHAN HYDROBROMIDE) [Concomitant]
  10. VITAMINS WITH MINERALS (VITAMINS WITH MINERALS) [Concomitant]
  11. MELATONIN (MELATONIN) [Concomitant]

REACTIONS (1)
  - OSTEOPENIA [None]
